FAERS Safety Report 4851500-1 (Version None)
Quarter: 2005Q4

REPORT INFORMATION
  Report Type: 
  Country: None (occurrence: None)
  Receive Date: 20051212
  Receipt Date: 20051128
  Transmission Date: 20060501
  Serious: Yes (Other)
  Sender: FDA-Public Use
  Company Number: PHBS2005PT17643

PATIENT
  Age: 65 Year
  Sex: Female
  Weight: 66 kg

DRUGS (7)
  1. ZOMETA [Suspect]
     Indication: GAUCHER'S DISEASE
  2. GABAPENTIN [Concomitant]
     Indication: NEURALGIA
     Dosage: 900 MG/D
     Route: 048
     Dates: start: 20040501
  3. AMLODIPINE BESYLATE [Concomitant]
     Indication: HYPERTENSION
     Route: 048
  4. ATENOLOL [Concomitant]
     Indication: HYPERTENSION
     Dosage: 50 MG/D
     Route: 048
     Dates: start: 20030501
  5. TRIMETAZIDINE DIHYDROCHLORIDE [Concomitant]
     Dosage: 60 MG/D
     Route: 048
  6. PAMIDRONATE DISODIUM [Concomitant]
     Dosage: 30 MG, QW
     Route: 065
     Dates: start: 20000101, end: 20021101
  7. GLUCOSAMINE SULFATE [Concomitant]
     Dosage: 1500 MG/D
     Route: 048
     Dates: start: 20020101

REACTIONS (5)
  - OSTEOMYELITIS [None]
  - OSTEONECROSIS [None]
  - PAIN IN JAW [None]
  - SURGERY [None]
  - TOOTH ABSCESS [None]
